FAERS Safety Report 18747367 (Version 1)
Quarter: 2021Q1

REPORT INFORMATION
  Report Type: Report from Study
  Country: US (occurrence: US)
  Receive Date: 20210115
  Receipt Date: 20210115
  Transmission Date: 20210419
  Serious: Yes (Disabling)
  Sender: FDA-Public Use
  Company Number: US-JNJFOC-20210105142

PATIENT
  Age: 58 Year
  Sex: Male

DRUGS (2)
  1. MACITENTAN [Suspect]
     Active Substance: MACITENTAN
     Indication: PULMONARY HYPERTENSION
     Route: 048
     Dates: start: 20200417
  2. ADEMPAS [Suspect]
     Active Substance: RIOCIGUAT
     Route: 065

REACTIONS (3)
  - Anxiety [Unknown]
  - Confusional state [Unknown]
  - Product use issue [Unknown]

NARRATIVE: CASE EVENT DATE: 202012
